FAERS Safety Report 8638804 (Version 3)
Quarter: 2012Q4

REPORT INFORMATION
  Report Type: 
  Country: US (occurrence: US)
  Receive Date: 20120627
  Receipt Date: 20121204
  Transmission Date: 20130627
  Serious: Yes (Death, Other)
  Sender: FDA-Public Use
  Company Number: US-ASTRAZENECA-2012SE40969

PATIENT
  Age: 52 Year
  Sex: Female

DRUGS (4)
  1. SYMBICORT PMDI [Suspect]
     Dosage: FREQUENCY UNKNOWN
     Route: 055
  2. NEXIUM [Suspect]
     Route: 048
  3. SEROQUEL [Suspect]
     Route: 048
  4. DEXILANT [Concomitant]

REACTIONS (12)
  - Death [Fatal]
  - Intervertebral disc protrusion [Unknown]
  - Thrombosis [Unknown]
  - Migraine [Unknown]
  - Decreased immune responsiveness [Unknown]
  - Hiatus hernia [Unknown]
  - Aphagia [Unknown]
  - Loss of consciousness [Unknown]
  - Dyspnoea [Unknown]
  - Influenza [Unknown]
  - Nasopharyngitis [Unknown]
  - Dyspnoea [Unknown]
